FAERS Safety Report 7001044-6 (Version None)
Quarter: 2010Q3

REPORT INFORMATION
  Report Type: 
  Country: None (occurrence: None)
  Receive Date: 20100920
  Receipt Date: 20070606
  Transmission Date: 20110219
  Serious: Yes (Hospitalization)
  Sender: FDA-Public Use
  Company Number: US-ASTRAZENECA-2006UW23215

PATIENT
  Age: 16398 Day
  Sex: Female
  Weight: 74.4 kg

DRUGS (18)
  1. SEROQUEL [Suspect]
     Indication: SCHIZOPHRENIA
     Dosage: STRENGTH: 200 MG, 300 MG DOSE: 200 MG TO 300 MG DAILY
     Route: 048
     Dates: start: 20001125
  2. SEROQUEL [Suspect]
     Route: 048
  3. ABILIFY [Concomitant]
  4. ABILIFY [Concomitant]
     Dates: start: 20070219
  5. HALDOL [Concomitant]
  6. RISPERDAL [Concomitant]
  7. RISPERDAL [Concomitant]
     Dosage: STRENGTH: 1 MG/ML, DOSE: 3 MG EVERYDAY
     Route: 048
     Dates: start: 20001125
  8. UNSPECIFIED PSYCHIATRIC MEDICATION [Concomitant]
  9. LORAZEPAM [Concomitant]
     Dosage: STRENGTH: 2 MG DOSE: 3 MG TO 6 MG DAILY
     Route: 048
     Dates: start: 20001125
  10. MENEST [Concomitant]
     Dosage: STRENGTH: 0.625 DOSE: 0.625 DAILY
     Route: 048
     Dates: start: 20001125
  11. AMBIEN [Concomitant]
     Dosage: STRENGTH: 5 MG, 10 MG. DOSE: 20 MG DAILY, 5 TO 10 MG AT NIGHT AS REQUIRED
     Route: 048
     Dates: start: 20001125
  12. BENZTROPINE MESYLATE [Concomitant]
     Route: 048
     Dates: start: 20001125
  13. HYDROCHLOROTHIAZIDE [Concomitant]
     Dosage: STRENGTH: 12.5 MG, 25 MG. DOSE: 12.5 MG DAILY
     Route: 048
     Dates: start: 20000101
  14. ALTACE [Concomitant]
     Dates: start: 20070219
  15. DEMADEX [Concomitant]
     Dates: start: 20070219
  16. XANAX [Concomitant]
     Dosage: 0.5 MG THREE TIMES A DAY AS REQUIRED
     Dates: start: 20070219
  17. ZOCOR [Concomitant]
     Dosage: STRENGTH: 4 MG, 40 MG. DOSE: 4 MG TO 40 MG DAILY
     Dates: start: 20070219
  18. EFFEXOR XR [Concomitant]
     Dates: start: 20070219

REACTIONS (7)
  - DIABETES MELLITUS [None]
  - DIABETIC COMA [None]
  - DIABETIC KETOACIDOSIS [None]
  - HYPEROSMOLAR STATE [None]
  - PANCREATITIS [None]
  - TYPE 1 DIABETES MELLITUS [None]
  - TYPE 2 DIABETES MELLITUS [None]
